FAERS Safety Report 9583627 (Version 1)
Quarter: 2013Q4

REPORT INFORMATION
  Report Type: Spontaneous
  Country: US (occurrence: US)
  Receive Date: 20131002
  Receipt Date: 20131002
  Transmission Date: 20140711
  Serious: No
  Sender: FDA-Public Use
  Company Number: US-AMGEN-USASP2013048043

PATIENT
  Age: 51 Year
  Sex: Female
  Weight: 77.1 kg

DRUGS (7)
  1. ENBREL [Suspect]
     Indication: PRODUCT USED FOR UNKNOWN INDICATION
     Dosage: 50 MG, QWK
     Route: 058
     Dates: start: 20081009
  2. AMBIEN [Concomitant]
     Dosage: 5 MG, UNK
  3. ENTOCORT EC [Concomitant]
     Dosage: 3 MG/24 HOUR
  4. CELEXA                             /00582602/ [Concomitant]
     Dosage: 10 MG, UNK
  5. VITAMIN D                          /00107901/ [Concomitant]
     Dosage: 1000 UNIT, UNK
  6. MULTIVITAMINS, PLAIN [Concomitant]
     Dosage: UNK
  7. HUMIRA [Concomitant]
     Dosage: UNK
     Dates: start: 201110, end: 20130626

REACTIONS (4)
  - Contusion [Unknown]
  - Rash erythematous [Unknown]
  - Pruritus [Unknown]
  - Rheumatoid arthritis [Unknown]
